FAERS Safety Report 16964483 (Version 1)
Quarter: 2019Q4

REPORT INFORMATION
  Report Type: Report from Study
  Country: None (occurrence: CO)
  Receive Date: 20191028
  Receipt Date: 20191028
  Transmission Date: 20200122
  Serious: Yes (Other)
  Sender: FDA-Public Use
  Company Number: CO-ABBVIE-19K-036-2975569-00

PATIENT
  Age: 66 Year
  Sex: Female
  Weight: 72 kg

DRUGS (1)
  1. HUMIRA [Suspect]
     Active Substance: ADALIMUMAB
     Indication: RHEUMATOID ARTHRITIS
     Route: 058
     Dates: start: 20190215

REACTIONS (14)
  - Lacrimation increased [Recovering/Resolving]
  - Eye discharge [Recovering/Resolving]
  - Pain [Recovering/Resolving]
  - Paraesthesia [Unknown]
  - Hypothyroidism [Recovering/Resolving]
  - Procedural pain [Unknown]
  - Foreign body in respiratory tract [Unknown]
  - Anaemia [Recovering/Resolving]
  - Osteoporosis [Recovering/Resolving]
  - Haemorrhoids [Recovering/Resolving]
  - Decreased appetite [Recovering/Resolving]
  - Haemorrhoids [Recovering/Resolving]
  - Nasal injury [Recovering/Resolving]
  - Pruritus [Recovering/Resolving]

NARRATIVE: CASE EVENT DATE: 2019
